FAERS Safety Report 19442884 (Version 8)
Quarter: 2024Q1

REPORT INFORMATION
  Report Type: Report from Study
  Country: CA (occurrence: CA)
  Receive Date: 20210621
  Receipt Date: 20240114
  Transmission Date: 20240410
  Serious: Yes (Life-Threatening, Other)
  Sender: FDA-Public Use
  Company Number: PHHY2016CA017679

PATIENT
  Age: 60 Year
  Sex: Male
  Weight: 77 kg

DRUGS (11)
  1. SANDOSTATIN LAR DEPOT [Suspect]
     Active Substance: OCTREOTIDE ACETATE
     Indication: Carcinoid tumour
     Dosage: 30 MG, Q4W (EVERY 4 WEEKS)
     Route: 030
     Dates: start: 20151110
  2. SANDOSTATIN LAR DEPOT [Suspect]
     Active Substance: OCTREOTIDE ACETATE
     Dosage: UNK
     Route: 065
     Dates: start: 20190124
  3. SANDOSTATIN LAR DEPOT [Suspect]
     Active Substance: OCTREOTIDE ACETATE
  4. BISOPROLOL [Concomitant]
     Active Substance: BISOPROLOL\BISOPROLOL FUMARATE
     Indication: Product used for unknown indication
     Dosage: 5 MG, QD (1 DAILY)
     Route: 048
  5. CITALOPRAM [Concomitant]
     Active Substance: CITALOPRAM HYDROBROMIDE
     Indication: Product used for unknown indication
     Dosage: 10 MG, OTHER (1 OTHER)
     Route: 048
  6. ROSUVASTATIN CALCIUM [Concomitant]
     Active Substance: ROSUVASTATIN CALCIUM
     Indication: Product used for unknown indication
     Dosage: 40 MG, OTHER (1 OTHER)
     Route: 048
  7. PERINDOPRIL [Concomitant]
     Active Substance: PERINDOPRIL
     Indication: Product used for unknown indication
     Dosage: 4 MG, OTHER (1 OTHER)
     Route: 048
  8. VENTOLIN HFA [Concomitant]
     Active Substance: ALBUTEROL SULFATE
     Indication: Product used for unknown indication
     Dosage: 1 DOSAGE FORM, OTHER
  9. FLOVENT HFA [Concomitant]
     Active Substance: FLUTICASONE PROPIONATE
     Indication: Product used for unknown indication
     Dosage: 1 DOSAGE FORM, OTHER
  10. FLUTICASONE [Concomitant]
     Active Substance: FLUTICASONE
     Indication: Product used for unknown indication
     Dosage: UNK, BID
  11. PRO-ZOPICLONE [Concomitant]
     Indication: Product used for unknown indication
     Dosage: 7.5 MG, QHS (1 PILL DAILY)
     Route: 048

REACTIONS (20)
  - Myocardial infarction [Unknown]
  - Blood pressure increased [Unknown]
  - Bronchitis [Recovering/Resolving]
  - Nervousness [Unknown]
  - Stress [Unknown]
  - Acne [Unknown]
  - Erythema [Recovering/Resolving]
  - Wound [Unknown]
  - Dry skin [Unknown]
  - Body temperature decreased [Unknown]
  - Inflammation [Recovering/Resolving]
  - Localised infection [Unknown]
  - Blood pressure systolic [Unknown]
  - Sciatica [Unknown]
  - Injury [Unknown]
  - Diarrhoea [Unknown]
  - Rash [Recovering/Resolving]
  - Weight decreased [Unknown]
  - Product deposit [Unknown]
  - Needle issue [Unknown]

NARRATIVE: CASE EVENT DATE: 20160205
